FAERS Safety Report 6366786-4 (Version None)
Quarter: 2009Q3

REPORT INFORMATION
  Report Type: 
  Country: None (occurrence: None)
  Receive Date: 20090921
  Receipt Date: 20090914
  Transmission Date: 20100115
  Serious: Yes (Death, Hospitalization)
  Sender: FDA-Public Use
  Company Number: DE-ROCHE-550479

PATIENT
  Age: 71 Year
  Sex: Male
  Weight: 64 kg

DRUGS (20)
  1. VALGANCICLOVIR HCL [Suspect]
     Route: 048
     Dates: start: 20071231
  2. VALGANCICLOVIR HCL [Suspect]
     Dosage: GIVEN IN THE MORNING.
     Route: 048
     Dates: end: 20080303
  3. PROGRAF [Concomitant]
     Dates: start: 20071219, end: 20080303
  4. CELLCEPT [Concomitant]
     Dates: start: 20071219
  5. CELLCEPT [Concomitant]
     Dosage: DOSE REDUCTION.
     Dates: start: 20080229, end: 20080303
  6. EBRANTIL [Concomitant]
     Dates: start: 20071225, end: 20080303
  7. EUTHYROX [Concomitant]
     Dates: start: 20070101, end: 20080303
  8. DECORTIN [Concomitant]
     Dates: start: 20071219, end: 20080303
  9. UNSPECIFIED DRUG [Concomitant]
     Dosage: DRUG NAME REPORTED AS ZOPLICON.
     Dates: end: 20080303
  10. BELOC-ZOK [Concomitant]
     Dates: end: 20080303
  11. XANEF [Concomitant]
     Dates: end: 20080303
  12. ACTRAPID [Concomitant]
     Dates: end: 20080303
  13. PROTAPHANE [Concomitant]
     Dates: end: 20080303
  14. INSULINE [Concomitant]
     Dates: end: 20080303
  15. PANTOPRAZOL [Concomitant]
     Dates: start: 20071220
  16. URAPIDIL [Concomitant]
     Dates: start: 20071226
  17. LERCANIDIPIN [Concomitant]
     Dates: start: 20071222
  18. METOPROLOL TARTRATE [Concomitant]
     Dates: start: 20071220
  19. ENALAPRIL MALEATE [Concomitant]
     Dates: start: 20071224
  20. FRUSEMID [Concomitant]
     Dates: start: 20071228

REACTIONS (3)
  - DEATH [None]
  - DEHYDRATION [None]
  - GASTROINTESTINAL DISORDER [None]
